FAERS Safety Report 20107310 (Version 3)
Quarter: 2022Q1

REPORT INFORMATION
  Report Type: Report from Study
  Country: US (occurrence: US)
  Receive Date: 20211124
  Receipt Date: 20220224
  Transmission Date: 20220423
  Serious: Yes (Hospitalization, Other)
  Sender: FDA-Public Use
  Company Number: US-ASTELLAS-2021US019274

PATIENT
  Age: 69 Year
  Sex: Female

DRUGS (2)
  1. GILTERITINIB [Suspect]
     Active Substance: GILTERITINIB
     Indication: Acute myeloid leukaemia
     Route: 048
     Dates: start: 20210218
  2. GILTERITINIB [Suspect]
     Active Substance: GILTERITINIB
     Route: 048

REACTIONS (6)
  - Hypertension [Unknown]
  - Dyspnoea [Not Recovered/Not Resolved]
  - Oedema [Unknown]
  - Blood creatinine increased [Unknown]
  - Loss of personal independence in daily activities [Unknown]
  - Renal disorder [Unknown]

NARRATIVE: CASE EVENT DATE: 20211101
